FAERS Safety Report 8760031 (Version 5)
Quarter: 2013Q1

REPORT INFORMATION
  Report Type: Spontaneous
  Country: US (occurrence: US)
  Receive Date: 20120829
  Receipt Date: 20130125
  Transmission Date: 20140127
  Serious: Yes (Other)
  Sender: FDA-Public Use
  Company Number: PHEH2012US015332

PATIENT
  Age: 53 Year
  Sex: Female
  Weight: 76.19 kg

DRUGS (22)
  1. GILENYA [Suspect]
     Indication: RELAPSING-REMITTING MULTIPLE SCLEROSIS
     Dosage: 0.5 MG, QD
     Route: 048
     Dates: start: 20120724, end: 20120823
  2. ADDERALL [Concomitant]
  3. METFORMIN [Concomitant]
  4. BACLOFEN [Concomitant]
  5. CLONAZEPAM [Concomitant]
  6. SINGULAIR [Concomitant]
  7. OSCAL [Concomitant]
  8. VITAMIN D3 [Concomitant]
  9. VITAMIN B12 [Concomitant]
  10. FLONASE [Concomitant]
  11. POTASSIUM CHLORIDE [Concomitant]
     Dosage: UNK UKN, UNK
  12. LASIX [Concomitant]
  13. PRAVACHOL [Concomitant]
  14. PRISTIQ [Concomitant]
  15. PRILOSEC [Concomitant]
     Dosage: UNK UKN, UNK
  16. FLOMAX ^BOEHRINGER INGELHEIM^ [Concomitant]
     Dosage: UNK UKN, UNK
  17. URIBEL [Concomitant]
     Dosage: UNK UKN, UNK
  18. BETASERON [Concomitant]
     Dosage: UNK UKN, UNK
     Dates: start: 20121018
  19. CALCIUM CITRATE [Concomitant]
     Dosage: UNK UKN, UNK
  20. FERROUS SULFATE [Concomitant]
     Dosage: UNK UKN, UNK
  21. MOBIC [Concomitant]
     Dosage: UNK UKN, UNK
  22. PRO-ONE [Concomitant]
     Dosage: UNK UKN, UNK

REACTIONS (11)
  - Chest discomfort [Recovering/Resolving]
  - Chest pain [Recovering/Resolving]
  - Dyspnoea [Recovering/Resolving]
  - Upper respiratory tract infection [Recovered/Resolved]
  - Sinusitis [Recovering/Resolving]
  - Productive cough [Recovering/Resolving]
  - Fatigue [Recovering/Resolving]
  - Chills [Recovering/Resolving]
  - Pain [Recovering/Resolving]
  - Nasal congestion [Recovering/Resolving]
  - Blood pressure increased [Recovering/Resolving]
